FAERS Safety Report 5834946-4 (Version None)
Quarter: 2008Q3

REPORT INFORMATION
  Report Type: 
  Country: None (occurrence: None)
  Receive Date: 20080804
  Receipt Date: 20080722
  Transmission Date: 20090109
  Serious: Yes (Hospitalization)
  Sender: FDA-Public Use
  Company Number: FRP08000641

PATIENT
  Age: 60 Year
  Sex: Female
  Weight: 62 kg

DRUGS (3)
  1. ACTONEL [Suspect]
     Indication: OSTEOPOROSIS
     Dosage: 35 MG, 1 /WEEK, ORAL
     Route: 048
     Dates: start: 20080227, end: 20080616
  2. STEROGYL /00107901/ (ERGOCALCIFEROL) [Concomitant]
  3. OROCAL D3 (COLECALCIFEROL, CALCIUM CARBONATE) [Concomitant]

REACTIONS (2)
  - PHOTOPHOBIA [None]
  - SCINTILLATING SCOTOMA [None]
